FAERS Safety Report 9458096 (Version 2)
Quarter: 2013Q4

REPORT INFORMATION
  Report Type: Report from Study
  Country: US (occurrence: US)
  Receive Date: 20130814
  Receipt Date: 20131024
  Transmission Date: 20140711
  Serious: No
  Sender: FDA-Public Use
  Company Number: PHEH2013US010114

PATIENT
  Age: 57 Year
  Sex: Female

DRUGS (6)
  1. TASIGNA [Suspect]
     Indication: CHRONIC MYELOID LEUKAEMIA
     Dosage: 300 MG,  TWICE DAILY
     Route: 048
     Dates: start: 20130320, end: 20130329
  2. ALPRAZOLAM [Concomitant]
     Dosage: 0.5 MG, QD
     Dates: start: 20130107
  3. FUROSEMIDE [Concomitant]
     Indication: SWELLING
     Dosage: 20 MG, PRN
     Dates: start: 20120207
  4. TOLTERODINE [Concomitant]
     Dosage: 2 MG, DAILY
  5. GABAPENTIN [Concomitant]
  6. METHIMAZOLE [Concomitant]

REACTIONS (9)
  - Myalgia [Recovered/Resolved]
  - Heart rate increased [Recovered/Resolved]
  - Blood creatine phosphokinase increased [Unknown]
  - Headache [Unknown]
  - Blood bilirubin increased [Unknown]
  - Palpitations [Unknown]
  - Lipase increased [Unknown]
  - Pain [Unknown]
  - Dyspepsia [Unknown]
